FAERS Safety Report 15637555 (Version 1)
Quarter: 2018Q4

REPORT INFORMATION
  Report Type: Spontaneous
  Country: US (occurrence: US)
  Receive Date: 20181120
  Receipt Date: 20181120
  Transmission Date: 20190205
  Serious: No
  Sender: FDA-Public Use
  Company Number: US-JNJFOC-20180517368

PATIENT
  Sex: Female
  Weight: 59 kg

DRUGS (8)
  1. IMBRUVICA [Suspect]
     Active Substance: IBRUTINIB
     Indication: MARGINAL ZONE LYMPHOMA
     Route: 048
     Dates: end: 2018
  2. SIMVASTATIN. [Concomitant]
     Active Substance: SIMVASTATIN
  3. POTASSIUM [Concomitant]
     Active Substance: POTASSIUM
  4. TYLENOL [Concomitant]
     Active Substance: ACETAMINOPHEN
  5. OMEPRAZOLE. [Concomitant]
     Active Substance: OMEPRAZOLE
  6. IMBRUVICA [Suspect]
     Active Substance: IBRUTINIB
     Indication: MARGINAL ZONE LYMPHOMA
     Route: 048
     Dates: start: 20180509
  7. HYDROCHLOROTHIAZIDE. [Concomitant]
     Active Substance: HYDROCHLOROTHIAZIDE
  8. LATANOPROST. [Concomitant]
     Active Substance: LATANOPROST

REACTIONS (1)
  - Blood count abnormal [Unknown]
